FAERS Safety Report 25139025 (Version 1)
Quarter: 2025Q1

REPORT INFORMATION
  Report Type: Spontaneous
  Country: US (occurrence: US)
  Receive Date: 20250331
  Receipt Date: 20250331
  Transmission Date: 20250409
  Serious: No
  Sender: CSL Plasma
  Company Number: US-CSLP-50902683636-V12822072-82

PATIENT
  Age: 31 Year
  Sex: Male

DRUGS (7)
  1. ANTICOAGULANT SODIUM CITRATE [Suspect]
     Active Substance: SODIUM CITRATE
     Indication: Anticoagulant therapy
     Route: 050
     Dates: start: 20250313, end: 20250313
  2. GABAPENTIN [Concomitant]
     Active Substance: GABAPENTIN
     Indication: Neuralgia
  3. TESTOSTERONE [Concomitant]
     Active Substance: TESTOSTERONE
     Indication: Blood testosterone decreased
  4. CETIRIZINE [Concomitant]
     Active Substance: CETIRIZINE HYDROCHLORIDE
     Indication: Hypersensitivity
  5. TIZANIDINE [Concomitant]
     Active Substance: TIZANIDINE
     Indication: Muscle relaxant therapy
  6. BROMPHENIRAMINE\PHENYLEPHRINE [Concomitant]
     Active Substance: BROMPHENIRAMINE\PHENYLEPHRINE
     Indication: Migraine
  7. FLONASE [Concomitant]
     Active Substance: FLUTICASONE PROPIONATE
     Indication: Hypersensitivity

REACTIONS (6)
  - Pain [Recovered/Resolved]
  - Hypoaesthesia [Recovered/Resolved]
  - Cyanosis [Recovered/Resolved]
  - Tetany [Recovered/Resolved]
  - Paraesthesia [Recovered/Resolved]
  - Muscle spasms [Recovered/Resolved]

NARRATIVE: CASE EVENT DATE: 20250313
